FAERS Safety Report 5576202-8 (Version None)
Quarter: 2007Q4

REPORT INFORMATION
  Report Type: 
  Country: None (occurrence: None)
  Receive Date: 20071228
  Receipt Date: 20071218
  Transmission Date: 20080405
  Serious: Yes (Death)
  Sender: FDA-Public Use
  Company Number: US-ROCHE-533961

PATIENT
  Age: 65 Year
  Sex: Male
  Weight: 99.4 kg

DRUGS (3)
  1. XELODA [Suspect]
     Indication: RECTAL CANCER
     Dosage: REPORTED AS 'PILL'
     Route: 048
     Dates: start: 20071112, end: 20071124
  2. TOPROL-XL [Concomitant]
  3. 1 CONCOMITANT UNSPECIFIED DRUG [Concomitant]
     Dosage: DRUG REPORTED AS 'A GEL FOR MOUTH SORES'
     Route: 065

REACTIONS (9)
  - DEHYDRATION [None]
  - DIARRHOEA [None]
  - ERYTHEMA [None]
  - GASTROINTESTINAL HAEMORRHAGE [None]
  - HIATUS HERNIA [None]
  - NAUSEA [None]
  - PYREXIA [None]
  - STOMATITIS [None]
  - VOMITING [None]
